FAERS Safety Report 5242683-2 (Version None)
Quarter: 2007Q1

REPORT INFORMATION
  Report Type: 
  Country: None (occurrence: None)
  Receive Date: 20070214
  Receipt Date: 20070129
  Transmission Date: 20070707
  Serious: Yes (Hospitalization)
  Sender: FDA-Public Use
  Company Number: 2007RR-05579

PATIENT
  Age: 18 Year
  Sex: Male

DRUGS (2)
  1. IBUPROFEN [Suspect]
     Indication: PYREXIA
     Dosage: 800 MG, QD, ORAL
     Route: 048
     Dates: start: 20061215, end: 20061218
  2. ACETAMINOPHEN [Concomitant]

REACTIONS (1)
  - STEVENS-JOHNSON SYNDROME [None]
